FAERS Safety Report 16065654 (Version 1)
Quarter: 2019Q1

REPORT INFORMATION
  Report Type: Spontaneous
  Country: DE (occurrence: DE)
  Receive Date: 20190313
  Receipt Date: 20190313
  Transmission Date: 20190418
  Serious: Yes (Other)
  Sender: FDA-Public Use
  Company Number: DE-AUROBINDO-AUR-APL-2019-012398

PATIENT

DRUGS (12)
  1. LORAZEPAM. [Concomitant]
     Active Substance: LORAZEPAM
     Indication: PRODUCT USED FOR UNKNOWN INDICATION
     Dosage: UNK
     Route: 065
  2. TRAZODONE [Concomitant]
     Active Substance: TRAZODONE HYDROCHLORIDE
     Indication: PRODUCT USED FOR UNKNOWN INDICATION
     Dosage: UNK (ADEQUATE DOSES FOR AT LEAST FOUR WEEKS)
     Route: 065
  3. DULOXETINE. [Concomitant]
     Active Substance: DULOXETINE
     Indication: PRODUCT USED FOR UNKNOWN INDICATION
     Dosage: UNK (ADEQUATE DOSES FOR AT LEAST FOUR WEEKS)
     Route: 065
  4. ARIPIPRAZOLE TABLETS [Suspect]
     Active Substance: ARIPIPRAZOLE
     Indication: DEPRESSION
     Dosage: UNK
     Route: 065
  5. ARIPIPRAZOLE TABLETS [Suspect]
     Active Substance: ARIPIPRAZOLE
     Dosage: 10 MILLIGRAM
     Route: 065
  6. BUPROPION. [Concomitant]
     Active Substance: BUPROPION
     Indication: PRODUCT USED FOR UNKNOWN INDICATION
     Dosage: UNK (ADEQUATE DOSES FOR AT LEAST FOUR WEEKS)
     Route: 065
  7. MILNACIPRAN [Concomitant]
     Active Substance: MILNACIPRAN
     Indication: PRODUCT USED FOR UNKNOWN INDICATION
     Dosage: UNK
     Route: 065
  8. CITALOPRAM [Concomitant]
     Active Substance: CITALOPRAM HYDROBROMIDE
     Indication: PRODUCT USED FOR UNKNOWN INDICATION
     Dosage: UNK (ADEQUATE DOSES FOR AT LEAST FOUR WEEKS)
     Route: 065
  9. QUETIAPINE. [Concomitant]
     Active Substance: QUETIAPINE
     Indication: PRODUCT USED FOR UNKNOWN INDICATION
     Dosage: UNK (ADEQUATE DOSES FOR AT LEAST FOUR WEEKS)
     Route: 065
  10. PIPAMPERONE [Concomitant]
     Active Substance: PIPAMPERONE
     Indication: PRODUCT USED FOR UNKNOWN INDICATION
     Dosage: UNK
     Route: 065
  11. OLANZAPINE. [Concomitant]
     Active Substance: OLANZAPINE
     Indication: PRODUCT USED FOR UNKNOWN INDICATION
     Dosage: UNK (ADEQUATE DOSES FOR AT LEAST FOUR WEEKS)
     Route: 065
  12. TRANYLCYPROMINE [Concomitant]
     Active Substance: TRANYLCYPROMINE
     Indication: PRODUCT USED FOR UNKNOWN INDICATION
     Dosage: 90 MILLIGRAM
     Route: 065

REACTIONS (15)
  - Anhedonia [Unknown]
  - Apathy [Unknown]
  - Adjustment disorder [Unknown]
  - Disturbance in attention [Unknown]
  - Drug resistance [Unknown]
  - Sense of oppression [Unknown]
  - Memory impairment [Unknown]
  - Depressed mood [Unknown]
  - Drug effect incomplete [Unknown]
  - Impulse-control disorder [Unknown]
  - Sleep disorder [Unknown]
  - Bradyphrenia [Unknown]
  - Product use in unapproved indication [Unknown]
  - Fatigue [Unknown]
  - Suicidal ideation [Unknown]
